FAERS Safety Report 8858045 (Version 1)
Quarter: 2012Q4

REPORT INFORMATION
  Report Type: 
  Country: US (occurrence: US)
  Receive Date: 20121024
  Receipt Date: 20121024
  Transmission Date: 20130627
  Serious: No
  Sender: FDA-Public Use
  Company Number: US-AMGEN-USASP2011062764

PATIENT
  Age: 50 Year
  Sex: Male

DRUGS (5)
  1. ENBREL [Suspect]
     Indication: PRODUCT USED FOR UNKNOWN INDICATION
     Dosage: 50 mg, qwk
     Route: 058
  2. CELEBREX [Concomitant]
  3. TRAMADOL HCL [Concomitant]
  4. FLEXERIL                           /00428402/ [Concomitant]
  5. OMEPRAZOLE [Concomitant]

REACTIONS (2)
  - Rash [Unknown]
  - Staphylococcal infection [Unknown]
